FAERS Safety Report 8046883-8 (Version None)
Quarter: 2012Q1

REPORT INFORMATION
  Report Type: 
  Country: None (occurrence: None)
  Receive Date: 20120116
  Receipt Date: 20120105
  Transmission Date: 20120608
  Serious: Yes (Other)
  Sender: FDA-Public Use
  Company Number: CA-JNJFOC-20120104386

PATIENT
  Sex: Male
  Weight: 138 kg

DRUGS (2)
  1. ANTIDEPRESSANT [Concomitant]
     Route: 065
  2. REMICADE [Suspect]
     Indication: PSORIATIC ARTHROPATHY
     Route: 042

REACTIONS (3)
  - EYELID OEDEMA [None]
  - EYE DISCHARGE [None]
  - OCULAR HYPERAEMIA [None]
